FAERS Safety Report 17855076 (Version 2)
Quarter: 2020Q2

REPORT INFORMATION
  Report Type: Spontaneous
  Country: TW (occurrence: TW)
  Receive Date: 20200603
  Receipt Date: 20200629
  Transmission Date: 20200714
  Serious: Yes (Hospitalization)
  Sender: FDA-Public Use
  Company Number: TW-JNJFOC-20200537040

PATIENT
  Age: 80 Year
  Sex: Female

DRUGS (5)
  1. XARELTO [Suspect]
     Active Substance: RIVAROXABAN
     Indication: PRODUCT USED FOR UNKNOWN INDICATION
     Dosage: 1 DF, HS
     Route: 048
     Dates: end: 20200311
  2. ADEMPAS [Suspect]
     Active Substance: RIOCIGUAT
     Indication: PULMONARY HYPERTENSION
     Dosage: 2 MG, TID
     Route: 048
     Dates: start: 201905
  3. DILTIAZEM. [Concomitant]
     Active Substance: DILTIAZEM
     Dosage: 1 DF, TID
  4. XARELTO [Suspect]
     Active Substance: RIVAROXABAN
     Dosage: 1 DF, QD
     Route: 048
     Dates: start: 20200324
  5. ADEMPAS [Suspect]
     Active Substance: RIOCIGUAT
     Indication: PULMONARY HYPERTENSION
     Dosage: 2 MG, TID
     Route: 048
     Dates: end: 201905

REACTIONS (12)
  - Pneumonia [Recovered/Resolved]
  - Pneumothorax [Unknown]
  - Sputum retention [Recovered/Resolved]
  - Calculus bladder [Recovered/Resolved]
  - Pleural effusion [Recovered/Resolved]
  - Pneumonia [Recovering/Resolving]
  - Vaginal discharge [Recovered/Resolved]
  - Oxygen saturation decreased [Unknown]
  - Haematuria [Recovered/Resolved]
  - Asthenia [Recovering/Resolving]
  - Sputum retention [Recovering/Resolving]
  - Sputum increased [Recovering/Resolving]

NARRATIVE: CASE EVENT DATE: 20191005
